FAERS Safety Report 5715407-X (Version None)
Quarter: 2008Q2

REPORT INFORMATION
  Report Type: 
  Country: None (occurrence: None)
  Receive Date: 20080423
  Receipt Date: 20080414
  Transmission Date: 20081010
  Serious: Yes (Life-Threatening, Hospitalization, Other)
  Sender: FDA-Public Use
  Company Number: DE-PFIZER INC-2008033269

PATIENT
  Sex: Male
  Weight: 15 kg

DRUGS (3)
  1. CLINDAMYCIN HCL [Suspect]
     Indication: ABSCESS
     Route: 048
     Dates: start: 20080321, end: 20080301
  2. CLINDAMYCIN PHOSPHATE [Suspect]
     Indication: ABSCESS
     Route: 042
     Dates: start: 20080310, end: 20080321
  3. PENICILLIN G [Concomitant]
     Dates: start: 20080306, end: 20080321

REACTIONS (3)
  - CONVULSION [None]
  - PYREXIA [None]
  - RASH [None]
